FAERS Safety Report 8195381-X (Version None)
Quarter: 2012Q1

REPORT INFORMATION
  Report Type: 
  Country: None (occurrence: None)
  Receive Date: 20120308
  Receipt Date: 20120229
  Transmission Date: 20120608
  Serious: Yes (Life-Threatening)
  Sender: FDA-Public Use
  Company Number: FR-GLAXOSMITHKLINE-B0784836A

PATIENT
  Sex: Female

DRUGS (3)
  1. CEFUROXIME [Suspect]
     Indication: SINUSITIS
     Dosage: 1UNIT SINGLE DOSE
     Route: 048
     Dates: start: 20120128, end: 20120128
  2. DIHYDROERGOTAMINE MESYLATE [Concomitant]
     Indication: MIGRAINE
  3. LEVOTHYROXINE SODIUM [Concomitant]
     Indication: HYPOTHYROIDISM
     Dosage: 25MCG PER DAY

REACTIONS (2)
  - RESPIRATORY TRACT OEDEMA [None]
  - BRONCHOSPASM [None]
